FAERS Safety Report 6427767-5 (Version None)
Quarter: 2009Q4

REPORT INFORMATION
  Report Type: 
  Country: None (occurrence: None)
  Receive Date: 20091105
  Receipt Date: 20091027
  Transmission Date: 20100525
  Serious: Yes (Hospitalization, Other)
  Sender: FDA-Public Use
  Company Number: CA-ABBOTT-09P-028-0605396-00

PATIENT
  Sex: Female

DRUGS (1)
  1. HUMIRA [Suspect]
     Indication: DRUG USE FOR UNKNOWN INDICATION
     Dosage: LOADING DOSE
     Route: 058
     Dates: start: 20090929

REACTIONS (8)
  - ABDOMINAL PAIN [None]
  - ABSCESS INTESTINAL [None]
  - CONDITION AGGRAVATED [None]
  - CROHN'S DISEASE [None]
  - FEELING ABNORMAL [None]
  - HOSPITALISATION [None]
  - INTESTINAL OBSTRUCTION [None]
  - REFUSAL OF TREATMENT BY PATIENT [None]
